FAERS Safety Report 8621753-2 (Version None)
Quarter: 2012Q3

REPORT INFORMATION
  Report Type: 
  Country: None (occurrence: None)
  Receive Date: 20120821
  Receipt Date: 20120821
  Transmission Date: 20120928
  Serious: Yes (Other)
  Sender: FDA-Public Use
  Company Number: None

PATIENT
  Sex: Female
  Weight: 79.8331 kg

DRUGS (1)
  1. PREDNISONE [Suspect]
     Dosage: 5MG TWICEDAILY ORALLY
     Route: 048
     Dates: start: 20120628, end: 20120810

REACTIONS (1)
  - DRUG DISPENSING ERROR [None]
